FAERS Safety Report 17741694 (Version 4)
Quarter: 2021Q3

REPORT INFORMATION
  Report Type: Spontaneous
  Country: US (occurrence: US)
  Receive Date: 20200504
  Receipt Date: 20210831
  Transmission Date: 20211014
  Serious: No
  Sender: FDA-Public Use
  Company Number: US-PFIZER INC-2020160950

PATIENT
  Age: 27 Year
  Sex: Male
  Weight: 117.93 kg

DRUGS (3)
  1. GENOTROPIN [Suspect]
     Active Substance: SOMATROPIN
     Dosage: ALTERNATING 2.4 AND 2.6 INJECT NIGHTLY ON STOMACH
     Dates: start: 1996
  2. GENOTROPIN [Suspect]
     Active Substance: SOMATROPIN
     Dosage: ALTERNATING 2.4 AND 2.6 INJECT NIGHTLY ON STOMACH
     Dates: start: 1997
  3. GENOTROPIN [Suspect]
     Active Substance: SOMATROPIN
     Indication: GROWTH HORMONE DEFICIENCY
     Dosage: 2.4 MG, DAILY
     Dates: end: 20200415

REACTIONS (3)
  - Device information output issue [Unknown]
  - Poor quality device used [Unknown]
  - Hypersomnia [Unknown]

NARRATIVE: CASE EVENT DATE: 202105
